FAERS Safety Report 9848541 (Version 1)
Quarter: 2014Q1

REPORT INFORMATION
  Report Type: Spontaneous
  Country: US (occurrence: None)
  Receive Date: 20140127
  Receipt Date: 20140127
  Transmission Date: 20141002
  Serious: Yes (Hospitalization, Disabling, Other)
  Sender: FDA-Public Use
  Company Number: None

PATIENT
  Age: 11 Year
  Sex: Female
  Weight: 27.8 kg

DRUGS (2)
  1. ENBREL [Suspect]
     Indication: JUVENILE IDIOPATHIC ARTHRITIS
     Dosage: 2.5/0.5 ML SINGLE USE PREFILLED SYRING ONCE A WEEK SUBCUTANEOUS INJECTION
     Route: 058
     Dates: start: 20130418, end: 20130928
  2. ZOFRAN [Concomitant]

REACTIONS (13)
  - Pain [None]
  - Burning sensation [None]
  - Headache [None]
  - Nausea [None]
  - Vomiting [None]
  - Benign intracranial hypertension [None]
  - Hydrocephalus [None]
  - Pinealoblastoma [None]
  - Injection site pain [None]
  - Abdominal pain upper [None]
  - Injection site inflammation [None]
  - Injection site irritation [None]
  - Injection site swelling [None]
